FAERS Safety Report 5221500-0 (Version None)
Quarter: 2007Q1

REPORT INFORMATION
  Report Type: 
  Country: None (occurrence: None)
  Receive Date: 20070126
  Receipt Date: 20070116
  Transmission Date: 20070707
  Serious: Yes (Hospitalization)
  Sender: FDA-Public Use
  Company Number: KR-PFIZER INC-2007005070

PATIENT
  Sex: Female
  Weight: 61 kg

DRUGS (5)
  1. SU-011,248 [Suspect]
     Indication: METASTATIC RENAL CELL CARCINOMA
     Route: 048
  2. MEGESTROL ACETATE [Concomitant]
     Route: 048
  3. DARBEPOETIN ALFA [Concomitant]
     Route: 058
  4. MAGNESIUM OXIDE [Concomitant]
     Route: 048
     Dates: start: 20061204, end: 20070106
  5. LOPERAMIDE HCL [Concomitant]
     Route: 048
     Dates: start: 20070107, end: 20070107

REACTIONS (6)
  - FACE OEDEMA [None]
  - HYPONATRAEMIA [None]
  - HYPOTHYROIDISM [None]
  - MUCOSAL INFLAMMATION [None]
  - PLEURAL EFFUSION [None]
  - SYNCOPE [None]
